FAERS Safety Report 16133625 (Version 1)
Quarter: 2019Q1

REPORT INFORMATION
  Report Type: Spontaneous
  Country: JP (occurrence: JP)
  Receive Date: 20190329
  Receipt Date: 20190329
  Transmission Date: 20190418
  Serious: Yes (Other)
  Sender: FDA-Public Use
  Company Number: JP-ACCORD-115866

PATIENT
  Age: 76 Year
  Sex: Male

DRUGS (3)
  1. FLUOROURACIL. [Suspect]
     Active Substance: FLUOROURACIL
     Indication: ANAL CANCER
     Dosage: 2400 MG/M2, EVERY 2 WEEKS
     Route: 040
  2. FOLINIC ACID [Suspect]
     Active Substance: LEUCOVORIN
     Indication: ANAL CANCER
     Dosage: ON DAY 1
  3. OXALIPLATIN. [Suspect]
     Active Substance: OXALIPLATIN
     Indication: ANAL CANCER

REACTIONS (1)
  - Thrombosis [Unknown]
